FAERS Safety Report 6556431-7 (Version None)
Quarter: 2010Q1

REPORT INFORMATION
  Report Type: 
  Country: None (occurrence: None)
  Receive Date: 20100128
  Receipt Date: 20100119
  Transmission Date: 20100710
  Serious: Yes (Hospitalization)
  Sender: FDA-Public Use
  Company Number: B0627360A

PATIENT
  Age: 39 Year
  Sex: Male
  Weight: 76.6 kg

DRUGS (8)
  1. ZYBAN [Suspect]
     Route: 048
     Dates: start: 20050127
  2. EFFEXOR [Suspect]
     Route: 048
     Dates: start: 20030812
  3. CIALIS [Suspect]
     Route: 048
     Dates: start: 20050127
  4. DIAZEPAM [Suspect]
     Indication: DEPENDENCE
     Dosage: 10MG PER DAY
     Route: 048
     Dates: start: 20030812
  5. DICLOFENAC [Suspect]
     Dosage: 150MG PER DAY
     Route: 048
     Dates: start: 20030812
  6. MORPHINE SULFATE [Suspect]
     Dosage: 320MG PER DAY
     Route: 065
     Dates: start: 20030812
  7. PENICILLIN V [Suspect]
     Indication: SPLENECTOMY
     Dosage: 500MG PER DAY
     Route: 065
     Dates: start: 20031111
  8. CO-TRIMOXAZOLE [Suspect]
     Dosage: 480MG PER DAY
     Route: 065
     Dates: start: 20040303

REACTIONS (1)
  - ACUTE MYOCARDIAL INFARCTION [None]
